FAERS Safety Report 10132664 (Version 1)
Quarter: 2014Q2

REPORT INFORMATION
  Report Type: Spontaneous
  Country: US (occurrence: US)
  Receive Date: 20140428
  Receipt Date: 20140428
  Transmission Date: 20141212
  Serious: No
  Sender: FDA-Public Use
  Company Number: US-MALLINCKRODT-T201303595

PATIENT
  Age: 26 Year
  Sex: Female
  Weight: 86.17 kg

DRUGS (3)
  1. HYDROCODONE/ACETAMINOPHEN [Suspect]
     Indication: DENTAL DISCOMFORT
     Dosage: 7.5/750MG, Q 4-6 HRS PRN
     Route: 048
     Dates: start: 20130502, end: 20130510
  2. COUGH SUPPRESSANTS AND EXPECTORANTS, COMBINAT [Concomitant]
     Indication: COUGH
     Route: 048
  3. ZYRTEC [Concomitant]
     Indication: HYPERSENSITIVITY
     Route: 048

REACTIONS (1)
  - Drug screen positive [Unknown]
